FAERS Safety Report 19587871 (Version 1)
Quarter: 2021Q3

REPORT INFORMATION
  Report Type: Spontaneous
  Country: DE (occurrence: DE)
  Receive Date: 20210721
  Receipt Date: 20210721
  Transmission Date: 20211014
  Serious: Yes (Hospitalization)
  Sender: FDA-Public Use
  Company Number: DE-ACCORD-232304

PATIENT
  Age: 84 Year
  Sex: Male

DRUGS (16)
  1. CANDESARTAN/CANDESARTAN CILEXETIL [Concomitant]
     Active Substance: CANDESARTAN
     Dosage: 16 MG, 1?0?1?0, TABLET
     Route: 048
  2. LATANOPROST/TIMOLOL [Concomitant]
     Active Substance: LATANOPROST\TIMOLOL
     Dosage: 5?50 MG/UG, 0?0?1?0, DROPS
     Route: 031
  3. FENOTEROL/IPRATROPIUM BROMIDE [Concomitant]
     Active Substance: FENOTEROL HYDROBROMIDE\IPRATROPIUM BROMIDE
     Dosage: 39.47?20.16 UG, IF NECESSARY 2 STROKES, METERED DOSE INHALER
     Route: 055
  4. FLUTICASONE PROPIONATE/SALMETEROL XINAFOATE [Concomitant]
     Active Substance: FLUTICASONE PROPIONATE\SALMETEROL XINAFOATE
     Dosage: 200 IU/ML, 1?0?1?0, METERED DOSE INHALER
     Route: 055
  5. EISEN(II)?KOMPLEX [Concomitant]
     Dosage: 100 MG, 1?0?0?0, CAPSULE
     Route: 048
  6. INSULIN DEGLUDEC [Concomitant]
     Active Substance: INSULIN DEGLUDEC
     Dosage: 10 IU, 1?0?0?0, SOLUTION FOR INJECTION / INFUSION
     Route: 058
  7. PANTOPRAZOLE [Concomitant]
     Active Substance: PANTOPRAZOLE
     Dosage: 40 MG, 1?0?0?0, TABLET
     Route: 048
  8. CARVEDILOL/CARVEDILOL HYDROCHLODRIDE [Suspect]
     Active Substance: CARVEDILOL HYDROCHLORIDE
     Indication: PRODUCT USED FOR UNKNOWN INDICATION
     Dosage: 12.5 MG, 1?0?1?0, TABLET
     Route: 048
  9. NITROLINGUAL [Concomitant]
     Active Substance: NITROGLYCERIN
     Dosage: 0.4 MG, IF NECESSARY, SPRAY
     Route: 055
  10. BIOTIN [Concomitant]
     Active Substance: BIOTIN
     Dosage: 0?0?1?0, CAPSULE
     Route: 048
  11. CYANOCOBALAMIN. [Concomitant]
     Active Substance: CYANOCOBALAMIN
     Dosage: 1?0?0?0, CAPSULE
     Route: 048
  12. APIXABAN [Suspect]
     Active Substance: APIXABAN
     Indication: PRODUCT USED FOR UNKNOWN INDICATION
     Dosage: 5 MG, 1?0?1?0, TABLET
     Route: 048
  13. TORASEMIDE [Suspect]
     Active Substance: TORSEMIDE
     Indication: PRODUCT USED FOR UNKNOWN INDICATION
     Dosage: 10 MG, 1?1?0?0, TABLET
     Route: 048
  14. LERCANIDIPINE/LERCANIDIPINE HYDROCHLORIDE [Concomitant]
     Active Substance: LERCANIDIPINE\LERCANIDIPINE HYDROCHLORIDE
     Dosage: 9.44 MG, 1?0?0?0, TABLET
     Route: 048
  15. OLODATEROL/TIOTROPIUM [Concomitant]
     Active Substance: OLODATEROL HYDROCHLORIDE\TIOTROPIUM BROMIDE MONOHYDRATE
     Dosage: 2.5?2.5 UG, 2?0?0?0, METERED DOSE INHALE
     Route: 055
  16. ALLOPURINOL/ALLOPURINOL SODIUM [Concomitant]
     Active Substance: ALLOPURINOL SODIUM
     Dosage: 100 MG, 1?0?0?0, TABLET
     Route: 048

REACTIONS (4)
  - Haematochezia [Unknown]
  - Dyspnoea [Unknown]
  - Contraindicated product administered [Unknown]
  - General physical health deterioration [Unknown]
